FAERS Safety Report 5990563-7 (Version None)
Quarter: 2008Q4

REPORT INFORMATION
  Report Type: 
  Country: None (occurrence: None)
  Receive Date: 20081211
  Receipt Date: 20080421
  Transmission Date: 20090506
  Serious: No
  Sender: FDA-Public Use
  Company Number: US-AMGEN-KDL273785

PATIENT
  Sex: Female

DRUGS (3)
  1. ENBREL [Suspect]
     Indication: PSORIATIC ARTHROPATHY
     Route: 058
     Dates: start: 20050607
  2. ENBREL [Suspect]
     Indication: PSORIASIS
  3. METHOTREXATE [Concomitant]
     Dates: start: 19980101

REACTIONS (6)
  - CONTUSION [None]
  - DRUG INEFFECTIVE [None]
  - DRY EYE [None]
  - ROSACEA [None]
  - SUPERFICIAL INJURY OF EYE [None]
  - VISUAL ACUITY REDUCED [None]
